FAERS Safety Report 8107523-2 (Version None)
Quarter: 2012Q1

REPORT INFORMATION
  Report Type: 
  Country: None (occurrence: None)
  Receive Date: 20120202
  Receipt Date: 20120123
  Transmission Date: 20120608
  Serious: Yes (Hospitalization)
  Sender: FDA-Public Use
  Company Number: JP-ROCHE-1010674

PATIENT
  Age: 41 Year
  Sex: Male

DRUGS (15)
  1. TACROLIMUS [Suspect]
     Dosage: 2-10MG
     Route: 048
     Dates: start: 20061209, end: 20100805
  2. TACROLIMUS [Suspect]
     Route: 042
     Dates: start: 20061206, end: 20061208
  3. MYCOPHENOLATE MOFETIL (CELLCEPT) [Suspect]
     Route: 048
     Dates: start: 20070308, end: 20070930
  4. PREDNISOLONE [Suspect]
     Route: 042
     Dates: start: 20061207, end: 20061212
  5. TACROLIMUS [Suspect]
     Indication: PROPHYLAXIS AGAINST TRANSPLANT REJECTION
     Dosage: 5-10MG
     Route: 048
     Dates: start: 20061201, end: 20061205
  6. SIMULECT [Concomitant]
     Route: 042
     Dates: start: 20061210, end: 20061210
  7. NOVORAPID [Concomitant]
     Indication: TYPE 1 DIABETES MELLITUS
     Dosage: 4-40 UNITS
     Route: 058
     Dates: start: 20061214
  8. SOLU-MEDROL [Concomitant]
     Indication: PROPHYLAXIS AGAINST TRANSPLANT REJECTION
     Route: 042
     Dates: start: 20061206, end: 20061206
  9. SIMULECT [Concomitant]
     Indication: PROPHYLAXIS AGAINST TRANSPLANT REJECTION
     Route: 042
     Dates: start: 20061206, end: 20061206
  10. MYCOPHENOLATE MOFETIL (CELLCEPT) [Suspect]
     Route: 048
     Dates: start: 20071001, end: 20100802
  11. MYCOPHENOLATE MOFETIL (CELLCEPT) [Suspect]
     Route: 048
     Dates: start: 20100803
  12. NOVOLIN N [Concomitant]
     Indication: TYPE 1 DIABETES MELLITUS
     Dosage: 10-16 UNITS
     Route: 058
  13. MYCOPHENOLATE MOFETIL (CELLCEPT) [Suspect]
     Indication: PROPHYLAXIS AGAINST TRANSPLANT REJECTION
     Route: 048
     Dates: start: 20061207, end: 20070307
  14. INSULIN [Concomitant]
     Indication: TYPE 1 DIABETES MELLITUS
     Dosage: 8-42 UNITS
     Route: 058
     Dates: start: 19750101
  15. PREDNISOLONE [Suspect]
     Indication: PROPHYLAXIS AGAINST TRANSPLANT REJECTION
     Dosage: 5-40MG
     Route: 048
     Dates: start: 20061213

REACTIONS (4)
  - CYTOMEGALOVIRUS INFECTION [None]
  - POST TRANSPLANT LYMPHOPROLIFERATIVE DISORDER [None]
  - URINARY TRACT INFECTION [None]
  - PANCREATIC CYST [None]
